FAERS Safety Report 19583536 (Version 1)
Quarter: 2021Q3

REPORT INFORMATION
  Report Type: Spontaneous
  Country: US (occurrence: US)
  Receive Date: 20210720
  Receipt Date: 20210720
  Transmission Date: 20211014
  Serious: Yes (Other)
  Sender: FDA-Public Use
  Company Number: None

PATIENT
  Age: 38 Year
  Sex: Female
  Weight: 108 kg

DRUGS (3)
  1. AUGMENTIN [Concomitant]
     Active Substance: AMOXICILLIN\CLAVULANATE POTASSIUM
     Dates: start: 20210714, end: 20210719
  2. FLUCONAZOLE. [Suspect]
     Active Substance: FLUCONAZOLE
     Indication: VULVOVAGINAL MYCOTIC INFECTION
     Dosage: ?          OTHER FREQUENCY:ONCE;?
     Route: 048
  3. PROBIOTICS, GENERIC, CVS [Concomitant]
     Dates: start: 20210715, end: 20210720

REACTIONS (1)
  - Rash [None]

NARRATIVE: CASE EVENT DATE: 20210720
